FAERS Safety Report 8457857 (Version 3)
Quarter: 2013Q1

REPORT INFORMATION
  Report Type: Spontaneous
  Country: US (occurrence: None)
  Receive Date: 20120306
  Receipt Date: 20121220
  Transmission Date: 20140127
  Serious: Yes (Life-Threatening, Disabling)
  Sender: FDA-Public Use
  Company Number: 2012SP010505

PATIENT
  Age: 28 Year
  Sex: Female

DRUGS (1)
  1. NOXAFIL [Suspect]
     Indication: ASPERGILLUS INFECTION

REACTIONS (5)
  - Fungal infection [None]
  - Apparent life threatening event [None]
  - Paralysis [None]
  - Therapeutic response decreased [None]
  - Tremor [None]
